APPROVED DRUG PRODUCT: CIALIS
Active Ingredient: TADALAFIL
Strength: 5MG
Dosage Form/Route: TABLET;ORAL
Application: N021368 | Product #001 | TE Code: AB1
Applicant: ELI LILLY AND CO
Approved: Nov 21, 2003 | RLD: Yes | RS: No | Type: RX